FAERS Safety Report 21227654 (Version 1)
Quarter: 2022Q3

REPORT INFORMATION
  Report Type: Spontaneous
  Country: GB (occurrence: GB)
  Receive Date: 20220818
  Receipt Date: 20220818
  Transmission Date: 20221027
  Serious: Yes (Life-Threatening, Hospitalization, Other)
  Sender: FDA-Public Use
  Company Number: None

PATIENT
  Age: 15 Year
  Sex: Male
  Weight: 42.00 kg

DRUGS (14)
  1. METHOTREXATE [Suspect]
     Active Substance: METHOTREXATE
     Indication: Anaplastic large-cell lymphoma
     Dosage: 3G/M2  3900 MG
     Route: 042
     Dates: start: 20130619, end: 20130619
  2. LANSOPRAZOLE [Suspect]
     Active Substance: LANSOPRAZOLE
     Indication: Dyspepsia
     Route: 048
     Dates: start: 20130525, end: 20130621
  3. GENTAMICIN [Concomitant]
     Active Substance: GENTAMICIN
  4. PIPERACILLIN AND TAZOBACTAM [Concomitant]
     Active Substance: PIPERACILLIN SODIUM\TAZOBACTAM SODIUM
  5. ACETAMINOPHEN [Concomitant]
     Active Substance: ACETAMINOPHEN
  6. DEXAMETHASONE [Concomitant]
     Active Substance: DEXAMETHASONE
  7. ONDANSETRON [Concomitant]
     Active Substance: ONDANSETRON
  8. LEVOMEPROMAZINE [Concomitant]
     Active Substance: LEVOMEPROMAZINE
  9. MESNA [Concomitant]
     Active Substance: MESNA
  10. ETOPOSIDE [Concomitant]
     Active Substance: ETOPOSIDE
  11. LEUCOVORIN CALCIUM [Concomitant]
     Active Substance: LEUCOVORIN CALCIUM
  12. CYTARABINE [Concomitant]
     Active Substance: CYTARABINE
  13. IFOSFAMIDE [Concomitant]
     Active Substance: IFOSFAMIDE
  14. CODEINE [Concomitant]
     Active Substance: CODEINE

REACTIONS (5)
  - Tubulointerstitial nephritis [Recovering/Resolving]
  - White blood cell count increased [Recovered/Resolved]
  - Abdominal pain [Unknown]
  - Pancreatitis [Unknown]
  - Acute kidney injury [Unknown]

NARRATIVE: CASE EVENT DATE: 20130620
